FAERS Safety Report 4829201-5 (Version None)
Quarter: 2005Q4

REPORT INFORMATION
  Report Type: 
  Country: None (occurrence: None)
  Receive Date: 20051027
  Receipt Date: 20050802
  Transmission Date: 20060501
  Serious: Yes (Hospitalization)
  Sender: FDA-Public Use
  Company Number: ZICO001259

PATIENT
  Age: 73 Year
  Sex: Female

DRUGS (4)
  1. PRIALT [Suspect]
     Indication: DRUG USE FOR UNKNOWN INDICATION
     Dosage: 0.0625 MCG/HR. INTRATHECAL
     Route: 037
     Dates: start: 20050629, end: 20050728
  2. MORPHINE [Concomitant]
  3. NEURONTIN [Concomitant]
  4. TEGRETOL [Concomitant]

REACTIONS (2)
  - CONFUSIONAL STATE [None]
  - DEPRESSED LEVEL OF CONSCIOUSNESS [None]
